FAERS Safety Report 9727622 (Version 1)
Quarter: 2013Q4

REPORT INFORMATION
  Report Type: Spontaneous
  Country: CN (occurrence: CN)
  Receive Date: 20131203
  Receipt Date: 20131203
  Transmission Date: 20140711
  Serious: Yes (Hospitalization)
  Sender: FDA-Public Use
  Company Number: CN-ABBVIE-13P-035-1175555-00

PATIENT
  Sex: Female

DRUGS (2)
  1. DEPAKINE [Suspect]
     Indication: FEBRILE CONVULSION
     Dosage: SOLUTION
     Route: 048
     Dates: start: 201308
  2. DEPAKINE [Suspect]
     Dosage: SOLUTION
     Route: 048

REACTIONS (3)
  - Trismus [Recovered/Resolved]
  - Convulsion [Recovered/Resolved]
  - Pyrexia [Recovered/Resolved]
